FAERS Safety Report 7133713-1 (Version None)
Quarter: 2010Q4

REPORT INFORMATION
  Report Type: 
  Country: None (occurrence: None)
  Receive Date: 20101203
  Receipt Date: 20101123
  Transmission Date: 20110411
  Serious: Yes (Hospitalization, Other)
  Sender: FDA-Public Use
  Company Number: US-BIOGENIDEC-2009BI023257

PATIENT
  Age: 50 Year
  Sex: Female

DRUGS (3)
  1. TYSABRI [Suspect]
     Indication: MULTIPLE SCLEROSIS
     Route: 042
     Dates: start: 20080219, end: 20091118
  2. TYSABRI [Suspect]
     Route: 042
     Dates: start: 20101006
  3. ASCORBIC ACID [Concomitant]

REACTIONS (3)
  - ABDOMINAL PAIN [None]
  - AMYOTROPHIC LATERAL SCLEROSIS [None]
  - GASTROINTESTINAL DISORDER [None]
